FAERS Safety Report 21147555 (Version 1)
Quarter: 2022Q3

REPORT INFORMATION
  Report Type: Spontaneous
  Country: US (occurrence: None)
  Receive Date: 20220728
  Receipt Date: 20220728
  Transmission Date: 20221027
  Serious: No
  Sender: FDA-Public Use
  Company Number: None

PATIENT
  Age: 80 Year
  Sex: Female
  Weight: 66.56 kg

DRUGS (8)
  1. XGEVA [Suspect]
     Active Substance: DENOSUMAB
     Indication: Breast cancer female
     Dosage: FREQUENCY : MONTHLY;?
     Route: 058
  2. FULVESTRANT [Suspect]
     Active Substance: FULVESTRANT
     Indication: Breast cancer female
     Dosage: OTHER FREQUENCY : ONCE A MONTH;?
     Route: 030
  3. VITAMINS [Concomitant]
     Active Substance: VITAMINS
  4. VITAMIN D3 [Concomitant]
     Active Substance: CHOLECALCIFEROL
  5. ATORVASTATIN [Concomitant]
     Active Substance: ATORVASTATIN
  6. HYDROCHLOROTHIAZIDE [Concomitant]
     Active Substance: HYDROCHLOROTHIAZIDE
  7. GAS-X [Concomitant]
     Active Substance: DIMETHICONE
  8. VERZENIO [Concomitant]
     Active Substance: ABEMACICLIB

REACTIONS (7)
  - Disease progression [None]
  - Liver disorder [None]
  - Lung disorder [None]
  - Pleural disorder [None]
  - Fatigue [None]
  - Malaise [None]
  - Weight decreased [None]
